FAERS Safety Report 5319710-7 (Version None)
Quarter: 2007Q2

REPORT INFORMATION
  Report Type: 
  Country: None (occurrence: None)
  Receive Date: 20070503
  Receipt Date: 20070423
  Transmission Date: 20071010
  Serious: Yes (Disabling)
  Sender: FDA-Public Use
  Company Number: 2007-155393-NL

PATIENT
  Age: 43 Year
  Sex: Male

DRUGS (1)
  1. MIRTAZAPINE [Suspect]
     Indication: DEPRESSION
     Dosage: 15 MG TID, ORAL
     Route: 048
     Dates: start: 20040101

REACTIONS (2)
  - FATIGUE [None]
  - MYALGIA [None]
